FAERS Safety Report 24358443 (Version 1)
Quarter: 2024Q3

REPORT INFORMATION
  Report Type: Spontaneous
  Country: US (occurrence: None)
  Receive Date: 20240924
  Receipt Date: 20240924
  Transmission Date: 20241017
  Serious: Yes (Other)
  Sender: Public
  Company Number: None

PATIENT
  Age: 53 Year
  Sex: Female
  Weight: 116 kg

DRUGS (1)
  1. DEFINITY [Suspect]
     Active Substance: PERFLUTREN
     Indication: Ultrasound scan
     Dosage: OTHER FREQUENCY : ONCE;?
     Route: 041
     Dates: start: 20240919, end: 20240919

REACTIONS (2)
  - Injection site pain [None]
  - Back pain [None]

NARRATIVE: CASE EVENT DATE: 20240919
